FAERS Safety Report 9940282 (Version 3)
Quarter: 2014Q2

REPORT INFORMATION
  Report Type: Report from Study
  Country: TR (occurrence: TR)
  Receive Date: 20140303
  Receipt Date: 20140603
  Transmission Date: 20141212
  Serious: Yes (Hospitalization)
  Sender: FDA-Public Use
  Company Number: TR-ABBVIE-14P-161-1206460-00

PATIENT
  Age: 24 Year
  Sex: Female
  Weight: 51 kg

DRUGS (2)
  1. HUMIRA [Suspect]
     Indication: ANKYLOSING SPONDYLITIS
     Route: 058
     Dates: start: 20140106
  2. ANTI ALLERGIC AGENTS [Concomitant]
     Indication: PRODUCT USED FOR UNKNOWN INDICATION
     Dosage: 2 DAYS BEFORE AND 2 DAYS AFTER HER EACH HUMIRA INJECTION

REACTIONS (7)
  - Dysphagia [Recovered/Resolved]
  - Tachycardia [Recovered/Resolved]
  - Back pain [Recovered/Resolved]
  - Injection site swelling [Recovered/Resolved]
  - Injection site haemorrhage [Recovered/Resolved]
  - Injection site pruritus [Recovered/Resolved]
  - Musculoskeletal pain [Recovered/Resolved]
